FAERS Safety Report 22271620 (Version 2)
Quarter: 2023Q2

REPORT INFORMATION
  Report Type: Spontaneous
  Country: BE (occurrence: BE)
  Receive Date: 20230502
  Receipt Date: 20230524
  Transmission Date: 20230722
  Serious: Yes (Disabling, Other)
  Sender: FDA-Public Use
  Company Number: BE-AMGEN-BELSP2023073374

PATIENT
  Age: 58 Year
  Sex: Female

DRUGS (3)
  1. PROLIA [Suspect]
     Active Substance: DENOSUMAB
     Indication: Osteoporosis
     Dosage: UNK, Q6MO
     Route: 058
     Dates: start: 20140513, end: 20220921
  2. MESALAMINE [Concomitant]
     Active Substance: MESALAMINE
     Dosage: 19 UNIT, 2 TIMES PER WEEK
     Dates: start: 20110409
  3. CALCIUM [Concomitant]
     Active Substance: CALCIUM

REACTIONS (2)
  - Osteonecrosis of external auditory canal [Not Recovered/Not Resolved]
  - Cholesteatoma [Unknown]

NARRATIVE: CASE EVENT DATE: 20150108
